FAERS Safety Report 18417347 (Version 1)
Quarter: 2020Q4

REPORT INFORMATION
  Report Type: Spontaneous
  Country: US (occurrence: US)
  Receive Date: 20201022
  Receipt Date: 20201022
  Transmission Date: 20210114
  Serious: No
  Sender: FDA-Public Use
  Company Number: 2020SGN02340

PATIENT
  Sex: Female

DRUGS (2)
  1. TUKYSA [Suspect]
     Active Substance: TUCATINIB
     Indication: BREAST CANCER FEMALE
  2. CAPECITABINE. [Suspect]
     Active Substance: CAPECITABINE

REACTIONS (8)
  - Tenderness [Unknown]
  - Injury [Unknown]
  - Diarrhoea [Unknown]
  - Muscle spasms [Unknown]
  - Animal bite [Unknown]
  - Ingrowing nail [Unknown]
  - Hand-foot-and-mouth disease [Recovering/Resolving]
  - Paronychia [Unknown]
